FAERS Safety Report 13870601 (Version 1)
Quarter: 2017Q3

REPORT INFORMATION
  Report Type: Spontaneous
  Country: AU (occurrence: AU)
  Receive Date: 20170816
  Receipt Date: 20170816
  Transmission Date: 20171127
  Serious: Yes (Other)
  Sender: FDA-Public Use
  Company Number: AU-BAXTER-2017BAX029611

PATIENT
  Sex: Female

DRUGS (5)
  1. BAXTER 0.9% SODIUM CHLORIDE 9G_L INJECTION BP BAG AHB1324 [Suspect]
     Active Substance: SODIUM CHLORIDE
     Indication: MEDICATION DILUTION
     Dosage: 1ST DOSE (INFUSION)
     Route: 042
  2. GRANISETRON [Suspect]
     Active Substance: GRANISETRON
     Indication: PREMEDICATION
     Route: 065
  3. DEXAMETHASONE. [Suspect]
     Active Substance: DEXAMETHASONE
     Indication: PREMEDICATION
     Route: 065
  4. ANZATAX (PACLITAXEL) [Suspect]
     Active Substance: PACLITAXEL
     Indication: CHEMOTHERAPY
     Dosage: FORM STRENGTH: 150 MG/25 ML, 1ST DOSE (INFUSION)
     Route: 042
  5. LORATADINE. [Suspect]
     Active Substance: LORATADINE
     Indication: PREMEDICATION
     Route: 065

REACTIONS (2)
  - Erythema [Recovered/Resolved]
  - Dyspnoea [Recovered/Resolved]
